FAERS Safety Report 26072138 (Version 1)
Quarter: 2025Q4

REPORT INFORMATION
  Report Type: Report from Study
  Country: GB (occurrence: GB)
  Receive Date: 20251120
  Receipt Date: 20251120
  Transmission Date: 20260118
  Serious: No
  Sender: BRISTOL-MYERS SQUIBB COMPANY
  Company Number: GB-BRISTOL-MYERS SQUIBB COMPANY-2025-154437

PATIENT
  Age: 72 Year
  Sex: Male

DRUGS (1)
  1. ORENCIA [Suspect]
     Active Substance: ABATACEPT
     Indication: Rheumatoid arthritis
     Dosage: CODE UNIT: 125 MG/ML DOSE: 4 X ORENCIA 125MG/1ML PRE-FILLED SYRINGE ONE PRE-FILLED SYRINGE ONCE EVERY WEEK
     Route: 058
     Dates: start: 20250410

REACTIONS (4)
  - Vision blurred [Unknown]
  - Device safety feature issue [Unknown]
  - Strabismus [Unknown]
  - Wrong technique in device usage process [Unknown]
